FAERS Safety Report 16018263 (Version 2)
Quarter: 2019Q2

REPORT INFORMATION
  Report Type: Spontaneous
  Country: None (occurrence: US)
  Receive Date: 20190228
  Receipt Date: 20190613
  Transmission Date: 20190711
  Serious: Yes (Death, Hospitalization)
  Sender: FDA-Public Use
  Company Number: US-MEDAC PHARMA, INC.-2063346

PATIENT
  Age: 27 Year
  Sex: Male
  Weight: 107.3 kg

DRUGS (5)
  1. METHOTREXATE. [Suspect]
     Active Substance: METHOTREXATE
     Indication: ACUTE LYMPHOCYTIC LEUKAEMIA
     Dates: start: 20160606, end: 20160606
  2. DEXAMETHASONE. [Suspect]
     Active Substance: DEXAMETHASONE
     Dates: start: 20160606, end: 20160610
  3. ONCASPAR [Suspect]
     Active Substance: PEGASPARGASE
     Dates: start: 20160606, end: 20160616
  4. VINCRISTINE SULFATE. [Suspect]
     Active Substance: VINCRISTINE SULFATE
     Dates: start: 20160606, end: 20160606
  5. CYTARABINE. [Suspect]
     Active Substance: CYTARABINE
     Dates: start: 20160606, end: 20160616

REACTIONS (9)
  - Anuria [Unknown]
  - Septic shock [Fatal]
  - Respiratory failure [Fatal]
  - Disseminated intravascular coagulation [Fatal]
  - Respiratory distress [Unknown]
  - Cardiac arrest [Fatal]
  - Hepatic failure [Fatal]
  - Lactic acidosis [Fatal]
  - Metabolic acidosis [Unknown]

NARRATIVE: CASE EVENT DATE: 20160623
